FAERS Safety Report 7273559-7 (Version None)
Quarter: 2011Q1

REPORT INFORMATION
  Report Type: 
  Country: None (occurrence: None)
  Receive Date: 20110203
  Receipt Date: 20100723
  Transmission Date: 20110831
  Serious: No
  Sender: FDA-Public Use
  Company Number: US-ABBOTT-10P-163-0660992-00

PATIENT
  Sex: Female

DRUGS (5)
  1. SYNTHROID [Suspect]
     Indication: HYPOTHYROIDISM
     Route: 048
     Dates: start: 19980101
  2. SYNTHROID [Suspect]
     Dosage: STOPPED MEDICATION FOR 2 DAYS TO SEE HOW FELT WITHOUT MEDICATION.
     Route: 048
     Dates: start: 20100701
  3. SYNTHROID [Suspect]
     Route: 048
  4. SYNTHROID [Suspect]
     Dosage: STOPPED MEDICATION FOR 2 DAYS TO SEE HOW FELT WITHOUT MEDICATION
     Route: 048
     Dates: end: 20100701
  5. SYNTHROID [Suspect]
     Route: 048

REACTIONS (5)
  - MALAISE [None]
  - HEADACHE [None]
  - DRY MOUTH [None]
  - NAUSEA [None]
  - ACTIVITIES OF DAILY LIVING IMPAIRED [None]
